FAERS Safety Report 7423575-7 (Version None)
Quarter: 2011Q2

REPORT INFORMATION
  Report Type: 
  Country: None (occurrence: None)
  Receive Date: 20110413
  Receipt Date: 20110413
  Transmission Date: 20111010
  Serious: Yes (Other)
  Sender: FDA-Public Use
  Company Number: None

PATIENT
  Sex: Female
  Weight: 156.5 kg

DRUGS (1)
  1. ONDANSETRON [Suspect]
     Dosage: 4MG 1 DOSE GIVEN IV ONCE
     Route: 042
     Dates: start: 20110410

REACTIONS (1)
  - PHLEBITIS [None]
